FAERS Safety Report 4569700-7 (Version None)
Quarter: 2005Q1

REPORT INFORMATION
  Report Type: 
  Country: None (occurrence: None)
  Receive Date: 20050201
  Receipt Date: 20050118
  Transmission Date: 20050727
  Serious: Yes (Disabling, Other)
  Sender: FDA-Public Use
  Company Number: 2005015083

PATIENT
  Age: 68 Year
  Sex: Male
  Weight: 70 kg

DRUGS (1)
  1. CELECOXIB (CELECOXIB) [Suspect]
     Indication: ANTIINFLAMMATORY THERAPY
     Dosage: 200 MG (200 MG, 1 IN 1 D), ORAL
     Route: 048
     Dates: start: 20020401, end: 20020501

REACTIONS (12)
  - AGEUSIA [None]
  - ANOREXIA [None]
  - ANOSMIA [None]
  - BLOOD FIBRINOGEN INCREASED [None]
  - COUGH [None]
  - DIFFICULTY IN WALKING [None]
  - GASTRIC ULCER [None]
  - HAEMODIALYSIS [None]
  - MYALGIA [None]
  - RASH [None]
  - RENAL IMPAIRMENT [None]
  - URINE CALCIUM INCREASED [None]
